FAERS Safety Report 19794943 (Version 1)
Quarter: 2021Q3

REPORT INFORMATION
  Report Type: Spontaneous
  Country: US (occurrence: US)
  Receive Date: 20210907
  Receipt Date: 20210907
  Transmission Date: 20211014
  Serious: Yes (Death, Hospitalization, Other)
  Sender: FDA-Public Use
  Company Number: US-ROCHE-2904761

PATIENT
  Age: 48 Year
  Sex: Male
  Weight: 182 kg

DRUGS (3)
  1. EPINEPHRINE. [Concomitant]
     Active Substance: EPINEPHRINE
  2. ACTEMRA [Suspect]
     Active Substance: TOCILIZUMAB
     Indication: COVID-19
     Route: 065
     Dates: start: 20210818
  3. DEXAMETHASONE. [Concomitant]
     Active Substance: DEXAMETHASONE

REACTIONS (6)
  - Leukocytosis [Unknown]
  - Acute respiratory failure [Fatal]
  - Off label use [Unknown]
  - Pneumothorax [Unknown]
  - Septic shock [Fatal]
  - Hypotension [Unknown]
